FAERS Safety Report 5156434-3 (Version None)
Quarter: 2006Q4

REPORT INFORMATION
  Report Type: 
  Country: None (occurrence: None)
  Receive Date: 20061122
  Receipt Date: 20061113
  Transmission Date: 20070319
  Serious: Yes (Hospitalization)
  Sender: FDA-Public Use
  Company Number: JP-JNJFOC-20061102936

PATIENT
  Age: 70 Year
  Sex: Female

DRUGS (4)
  1. RISPERDAL [Suspect]
     Route: 048
  2. RISPERDAL [Suspect]
     Indication: SCHIZOPHRENIA
     Route: 048
  3. BETAMETHASONE [Concomitant]
     Route: 048
  4. BETAMETHASONE [Concomitant]
     Route: 048

REACTIONS (1)
  - PEMPHIGOID [None]
